FAERS Safety Report 6390752-6 (Version None)
Quarter: 2009Q4

REPORT INFORMATION
  Report Type: 
  Country: None (occurrence: None)
  Receive Date: 20091001
  Receipt Date: 20090710
  Transmission Date: 20100525
  Serious: No
  Sender: FDA-Public Use
  Company Number: 1000007384

PATIENT
  Age: 79 Year
  Sex: Female

DRUGS (3)
  1. BYSTOLIC [Suspect]
     Indication: ARRHYTHMIA
     Dosage: 1.25 MG (1.25 MG. 1 IN 1 D), ORAL
     Route: 048
     Dates: start: 20090626, end: 20090707
  2. ASPIRIN [Concomitant]
  3. VITAMIN D [Concomitant]

REACTIONS (5)
  - BLOOD PRESSURE INCREASED [None]
  - COORDINATION ABNORMAL [None]
  - FATIGUE [None]
  - GAIT DISTURBANCE [None]
  - INSOMNIA [None]
